FAERS Safety Report 5280155-X (Version None)
Quarter: 2007Q1

REPORT INFORMATION
  Report Type: 
  Country: None (occurrence: None)
  Receive Date: 20070326
  Receipt Date: 20070326
  Transmission Date: 20070707
  Serious: Yes (Life-Threatening, Other)
  Sender: FDA-Public Use
  Company Number: None

PATIENT
  Age: 30 Year
  Sex: Female
  Weight: 58.9676 kg

DRUGS (1)
  1. ALPRAZOLAM [Suspect]
     Indication: PANIC DISORDER
     Dosage: .25MG  2 TABS 4 TIMES/DAY PO
     Route: 048
     Dates: start: 19970802, end: 20070323

REACTIONS (102)
  - ABASIA [None]
  - ABDOMINAL DISTENSION [None]
  - ABDOMINAL PAIN UPPER [None]
  - AGITATION [None]
  - AGORAPHOBIA [None]
  - ALOPECIA [None]
  - AMNESIA [None]
  - ANGER [None]
  - ANHEDONIA [None]
  - ANXIETY [None]
  - ARTHRALGIA [None]
  - ASTHENOPIA [None]
  - BRUXISM [None]
  - CHAPPED LIPS [None]
  - CHEST PAIN [None]
  - CLUMSINESS [None]
  - CONSTIPATION [None]
  - CONVERSION DISORDER [None]
  - CONVULSION [None]
  - COORDINATION ABNORMAL [None]
  - DEMENTIA [None]
  - DENTAL CARIES [None]
  - DEPERSONALISATION [None]
  - DEPRESSED LEVEL OF CONSCIOUSNESS [None]
  - DEPRESSION [None]
  - DEREALISATION [None]
  - DIARRHOEA [None]
  - DIPLOPIA [None]
  - DISORIENTATION [None]
  - DISSOCIATION [None]
  - DISTURBANCE IN ATTENTION [None]
  - DIZZINESS [None]
  - DRUG WITHDRAWAL SYNDROME [None]
  - DRY MOUTH [None]
  - DYSGEUSIA [None]
  - DYSGRAPHIA [None]
  - DYSPEPSIA [None]
  - DYSPHAGIA [None]
  - DYSPNOEA [None]
  - EAR PAIN [None]
  - ELECTRIC SHOCK [None]
  - ERECTILE DYSFUNCTION [None]
  - EXCESSIVE EYE BLINKING [None]
  - EXCORIATION [None]
  - EYE DISORDER [None]
  - EYE MOVEMENT DISORDER [None]
  - EYE PAIN [None]
  - FATIGUE [None]
  - FEAR [None]
  - FEELING ABNORMAL [None]
  - FEELING COLD [None]
  - FLASHBACK [None]
  - FOOD ALLERGY [None]
  - GINGIVAL DISORDER [None]
  - HALLUCINATION [None]
  - HOMICIDAL IDEATION [None]
  - HYPERHIDROSIS [None]
  - HYPOAESTHESIA [None]
  - IMPAIRED HEALING [None]
  - INAPPROPRIATE AFFECT [None]
  - INFLUENZA LIKE ILLNESS [None]
  - INSOMNIA [None]
  - IRIS DISORDER [None]
  - LIP PAIN [None]
  - MIOSIS [None]
  - MUSCLE ATROPHY [None]
  - MUSCLE RIGIDITY [None]
  - MUSCLE SPASMS [None]
  - MUSCLE TWITCHING [None]
  - NAIL DISORDER [None]
  - NAUSEA [None]
  - NECK PAIN [None]
  - NERVOUS SYSTEM DISORDER [None]
  - NERVOUSNESS [None]
  - NEURALGIA [None]
  - NIGHTMARE [None]
  - OBSESSIVE THOUGHTS [None]
  - OBSESSIVE-COMPULSIVE DISORDER [None]
  - PAIN [None]
  - PAIN IN JAW [None]
  - PALPITATIONS [None]
  - PANIC ATTACK [None]
  - PARAESTHESIA [None]
  - PARANOIA [None]
  - PHOBIA [None]
  - PHOTOPSIA [None]
  - PRURITUS [None]
  - PSYCHOMOTOR HYPERACTIVITY [None]
  - RASH [None]
  - RASH MACULAR [None]
  - READING DISORDER [None]
  - RESTLESS LEGS SYNDROME [None]
  - SALIVARY HYPERSECRETION [None]
  - SENSATION OF HEAVINESS [None]
  - SINUS DISORDER [None]
  - SPEECH DISORDER [None]
  - SUICIDAL IDEATION [None]
  - TENSION HEADACHE [None]
  - THIRST [None]
  - TINNITUS [None]
  - VERTIGO [None]
  - VISION BLURRED [None]
